FAERS Safety Report 5190759-0 (Version None)
Quarter: 2006Q4

REPORT INFORMATION
  Report Type: 
  Country: None (occurrence: None)
  Receive Date: 20061222
  Receipt Date: 20061218
  Transmission Date: 20070319
  Serious: Yes (Death)
  Sender: FDA-Public Use
  Company Number: US-BRISTOL-MYERS SQUIBB COMPANY-13616651

PATIENT
  Age: 59 Year
  Sex: Female

DRUGS (1)
  1. CYTOXAN [Suspect]
     Indication: LYMPHOMA

REACTIONS (2)
  - DEATH [None]
  - LYMPHOMA [None]
